FAERS Safety Report 9813773 (Version 1)
Quarter: 2014Q1

REPORT INFORMATION
  Report Type: Spontaneous
  Country: TR (occurrence: TR)
  Receive Date: 20140113
  Receipt Date: 20140113
  Transmission Date: 20141002
  Serious: Yes (Other)
  Sender: FDA-Public Use
  Company Number: TR-TEVA-454148ISR

PATIENT
  Age: 65 Year
  Sex: 0
  Weight: 74 kg

DRUGS (4)
  1. CARBOPLATIN TEVA [Suspect]
     Dates: start: 20131217, end: 20131217
  2. PREDNOL [Concomitant]
  3. AVIL [Concomitant]
  4. ULCURAN [Concomitant]

REACTIONS (2)
  - Respiratory distress [Recovered/Resolved]
  - Rash [Recovered/Resolved]
